FAERS Safety Report 16196928 (Version 1)
Quarter: 2019Q2

REPORT INFORMATION
  Report Type: Spontaneous
  Country: US (occurrence: US)
  Receive Date: 20190311
  Receipt Date: 20190311
  Transmission Date: 20190711
  Serious: No
  Sender: FDA-Public Use
  Company Number: None

PATIENT
  Age: 63 Year
  Sex: Female

DRUGS (1)
  1. TASIGNA [Suspect]
     Active Substance: NILOTINIB
     Dates: start: 20190304

REACTIONS (5)
  - Pruritus [None]
  - Dry skin [None]
  - Nipple disorder [None]
  - Rash [None]
  - Skin disorder [None]

NARRATIVE: CASE EVENT DATE: 20190311
